FAERS Safety Report 5003426-0 (Version None)
Quarter: 2006Q2

REPORT INFORMATION
  Report Type: 
  Country: None (occurrence: None)
  Receive Date: 20060511
  Receipt Date: 20060425
  Transmission Date: 20061013
  Serious: Yes (Hospitalization)
  Sender: FDA-Public Use
  Company Number: DSA_28105_2006

PATIENT
  Age: 81 Year
  Sex: Female

DRUGS (2)
  1. ORFIDAL [Suspect]
     Dosage: 1 MG Q DAY PO
     Route: 048
     Dates: end: 20050623
  2. NOBRITOL [Suspect]
     Dosage: 1 CAP Q DAY PO
     Route: 048
     Dates: end: 20050623

REACTIONS (2)
  - FALL [None]
  - SYNCOPE [None]
